FAERS Safety Report 9285451 (Version 4)
Quarter: 2014Q1

REPORT INFORMATION
  Report Type: Spontaneous
  Country: US (occurrence: US)
  Receive Date: 20130513
  Receipt Date: 20140213
  Transmission Date: 20141002
  Serious: Yes (Hospitalization, Other)
  Sender: FDA-Public Use
  Company Number: US-PFIZER INC-2013145570

PATIENT
  Sex: Male

DRUGS (1)
  1. LYRICA [Suspect]
     Dosage: 150 MG, UNK
     Dates: end: 20131025

REACTIONS (6)
  - Cardiac disorder [Unknown]
  - Chest pain [Unknown]
  - Loss of consciousness [Unknown]
  - Bedridden [Unknown]
  - Pain [Not Recovered/Not Resolved]
  - Bacterial test positive [Unknown]
